FAERS Safety Report 24879379 (Version 1)
Quarter: 2025Q1

REPORT INFORMATION
  Report Type: Spontaneous
  Country: US (occurrence: US)
  Receive Date: 20250123
  Receipt Date: 20250123
  Transmission Date: 20250409
  Serious: No
  Sender: SANOFI AVENTIS
  Company Number: US-SA-2025SA020727

PATIENT
  Sex: Male
  Weight: 106.82 kg

DRUGS (1)
  1. LUMIZYME [Suspect]
     Active Substance: ALGLUCOSIDASE ALFA
     Indication: Glycogen storage disease type II
     Dosage: 2400 MG, QOW
     Route: 042
     Dates: start: 202102

REACTIONS (5)
  - Weight increased [Unknown]
  - Cough [Unknown]
  - Dysphagia [Unknown]
  - Gait disturbance [Unknown]
  - Fall [Unknown]
